FAERS Safety Report 9130018 (Version 1)
Quarter: 2013Q1

REPORT INFORMATION
  Report Type: Spontaneous
  Country: US (occurrence: US)
  Receive Date: 20130125
  Receipt Date: 20130125
  Transmission Date: 20140127
  Serious: Yes (Other)
  Sender: FDA-Public Use
  Company Number: US-BAYER-2013-010549

PATIENT
  Age: 75 Year
  Sex: Male
  Weight: 102.06 kg

DRUGS (16)
  1. PROPAFENONE [Concomitant]
     Indication: ATRIAL FIBRILLATION
     Dosage: 450 MG, QD
     Route: 048
  2. CLONIDINE [Concomitant]
     Indication: BLOOD PRESSURE ABNORMAL
     Dosage: .2 MG, UNK
     Route: 048
  3. LIVALO [Concomitant]
     Indication: BLOOD CHOLESTEROL ABNORMAL
     Dosage: 2 MG, QD
     Route: 048
     Dates: start: 201201
  4. BYSTOLIC [Concomitant]
     Indication: HEART RATE ABNORMAL
     Dosage: 2.5 MG, QD
     Route: 048
     Dates: start: 201005
  5. TEKTURNA [Concomitant]
     Indication: BLOOD PRESSURE ABNORMAL
     Dosage: UNK UNK, QD
     Route: 048
  6. AMOXICILLIN [Concomitant]
     Indication: HIP ARTHROPLASTY
     Route: 065
  7. XARELTO [Suspect]
     Indication: ATRIAL FIBRILLATION
     Dosage: 20 MG, QD
     Route: 048
     Dates: start: 20120827
  8. XARELTO [Interacting]
     Indication: CEREBROVASCULAR ACCIDENT PROPHYLAXIS
  9. ACETYLSALICYLIC ACID({=100 MG) [Interacting]
     Indication: ANTICOAGULANT THERAPY
     Dosage: 81 MG, QD
     Route: 048
  10. DILTIAZEM [Concomitant]
     Indication: BLOOD PRESSURE ABNORMAL
     Dosage: 240 MG, BID
     Route: 048
  11. FINASTERIDE [Concomitant]
     Indication: PROSTATIC DISORDER
     Dosage: 5 MG, QD
     Route: 048
     Dates: start: 20080201
  12. FUROSEMIDE [Concomitant]
     Indication: BLOOD PRESSURE ABNORMAL
     Dosage: 40 MG, QD
     Route: 048
  13. GLUCOSAMINE [Concomitant]
     Indication: ARTHROPATHY
     Route: 065
  14. MULTIVITAMINS [Concomitant]
     Indication: PRODUCT USED FOR UNKNOWN INDICATION
     Route: 065
  15. OMEGA 3 (FISH OIL) [Concomitant]
     Indication: ROUTINE HEALTH MAINTENANCE
     Dosage: 4000 MG, QD
     Route: 065
  16. OMEGA 3 (FISH OIL) [Concomitant]
     Indication: BLOOD CHOLESTEROL ABNORMAL

REACTIONS (2)
  - Haematemesis [Recovered/Resolved]
  - Inappropriate schedule of drug administration [Unknown]
